FAERS Safety Report 15461041 (Version 3)
Quarter: 2020Q2

REPORT INFORMATION
  Report Type: Spontaneous
  Country: US (occurrence: US)
  Receive Date: 20181003
  Receipt Date: 20200608
  Transmission Date: 20200713
  Serious: Yes (Other)
  Sender: FDA-Public Use
  Company Number: US-PFIZER INC-2018328056

PATIENT
  Age: 4 Year
  Sex: Female
  Weight: 15.69 kg

DRUGS (3)
  1. GENOTROPIN [Suspect]
     Active Substance: SOMATROPIN
     Dosage: 0.3 MG, DAILY (DIAL TO 5; BELIEVE IT WAS 0.3MG BY INJECTION DAILY)
     Dates: start: 201512, end: 2018
  2. GENOTROPIN [Suspect]
     Active Substance: SOMATROPIN
     Indication: HYPOPITUITARISM
     Dosage: 5 MG, UNK
  3. SYNTHROID [Concomitant]
     Active Substance: LEVOTHYROXINE SODIUM
     Indication: THYROID DISORDER
     Dosage: 25 UG, DAILY [25MCG; TAKE ONE DAILY BY MOUTH]
     Route: 048
     Dates: start: 2015

REACTIONS (9)
  - Subvalvular aortic stenosis [Recovering/Resolving]
  - Arnold-Chiari malformation [Unknown]
  - Intracranial pressure increased [Recovering/Resolving]
  - Condition aggravated [Recovering/Resolving]
  - Coarctation of the aorta [Recovering/Resolving]
  - Cerebral disorder [Unknown]
  - Cardiac disorder [Unknown]
  - Post procedural infection [Not Recovered/Not Resolved]
  - Migraine [Recovering/Resolving]

NARRATIVE: CASE EVENT DATE: 2018
